FAERS Safety Report 8513098 (Version 5)
Quarter: 2014Q4

REPORT INFORMATION
  Report Type: Report from Study
  Country: IN (occurrence: IN)
  Receive Date: 20120414
  Receipt Date: 20141217
  Transmission Date: 20150529
  Serious: Yes (Hospitalization, Other)
  Sender: FDA-Public Use
  Company Number: PHHO2012IN004405

PATIENT

DRUGS (14)
  1. MYFORTIC [Suspect]
     Active Substance: MYCOPHENOLATE SODIUM
     Indication: RENAL TRANSPLANT
     Dosage: 360 MG, TID
     Route: 048
     Dates: start: 20120227, end: 20120316
  2. SIMULECT [Suspect]
     Active Substance: BASILIXIMAB
     Indication: RENAL TRANSPLANT
     Route: 065
  3. PANTOPRAZOLE [Concomitant]
     Active Substance: PANTOPRAZOLE SODIUM
     Indication: PROPHYLAXIS
     Dosage: 40 MG, QD
     Route: 048
     Dates: start: 20120403
  4. NEORAL [Suspect]
     Active Substance: CYCLOSPORINE
     Dosage: 225 MG, BID
     Route: 048
     Dates: start: 20120319
  5. PRAZOSIN [Concomitant]
     Active Substance: PRAZOSIN
     Indication: HYPERTENSION
     Dosage: 5 MG, BID
     Route: 048
     Dates: start: 20120307
  6. SEPTRAN [Concomitant]
     Indication: PROPHYLAXIS
     Dosage: 480 MG, QD
     Route: 048
     Dates: start: 20120301
  7. DILZEM [Concomitant]
     Active Substance: DILTIAZEM
     Indication: PROPHYLAXIS
     Dosage: 90 1/2 QD
     Route: 048
     Dates: start: 20120403
  8. NEORAL [Suspect]
     Active Substance: CYCLOSPORINE
     Indication: RENAL TRANSPLANT
     Dosage: 200 MG, BID
     Route: 048
     Dates: start: 20120227, end: 20120316
  9. WYSOLONE [Concomitant]
     Indication: PROPHYLAXIS
     Dosage: 20 MG, QD
     Route: 048
     Dates: start: 20120229
  10. MYFORTIC [Suspect]
     Active Substance: MYCOPHENOLATE SODIUM
     Dosage: 1440 MG, TID
     Route: 048
     Dates: start: 20120319
  11. PANTOLOC [Concomitant]
     Active Substance: PANTOPRAZOLE SODIUM
     Indication: PROPHYLAXIS
     Dosage: 40 MG, QD
     Route: 048
     Dates: start: 20120303
  12. RANTAC [Concomitant]
     Active Substance: RANITIDINE HYDROCHLORIDE
     Indication: ANTACID THERAPY
     Dosage: 150 MG, BID
     Route: 048
     Dates: start: 20120301
  13. ARKAMIN [Concomitant]
     Indication: HYPERTENSION
     Dosage: 100 MG, TID
     Route: 048
     Dates: start: 20120307
  14. AMLONG [Concomitant]
     Indication: HYPERTENSION
     Dosage: 5 MG, BID
     Route: 048
     Dates: start: 20120313

REACTIONS (4)
  - Deep vein thrombosis [Unknown]
  - Kidney transplant rejection [Recovering/Resolving]
  - Post procedural haemorrhage [Recovered/Resolved]
  - Renal vein thrombosis [Recovering/Resolving]

NARRATIVE: CASE EVENT DATE: 20120316
